FAERS Safety Report 24058357 (Version 1)
Quarter: 2024Q3

REPORT INFORMATION
  Report Type: Spontaneous
  Country: CN (occurrence: CN)
  Receive Date: 20240708
  Receipt Date: 20240708
  Transmission Date: 20241016
  Serious: Yes (Hospitalization)
  Sender: BEIGENE
  Company Number: CN-BEIGENE-BGN-2024-010012

PATIENT

DRUGS (4)
  1. TISLELIZUMAB [Suspect]
     Active Substance: TISLELIZUMAB
     Indication: Rectal cancer
     Dosage: 200 MILLIGRAM
     Route: 041
     Dates: start: 20240320, end: 20240418
  2. TISLELIZUMAB [Suspect]
     Active Substance: TISLELIZUMAB
     Indication: Metastases to liver
     Dosage: 200 MILLIGRAM
     Route: 041
     Dates: start: 20240522
  3. REGORAFENIB [Concomitant]
     Active Substance: REGORAFENIB
     Indication: Rectal cancer
     Dosage: 80 MILLIGRAM
     Route: 048
     Dates: start: 20240320, end: 20240611
  4. REGORAFENIB [Concomitant]
     Active Substance: REGORAFENIB
     Indication: Metastases to liver

REACTIONS (2)
  - Herpes virus infection [Recovering/Resolving]
  - Pruritus [Recovering/Resolving]

NARRATIVE: CASE EVENT DATE: 20240529
